FAERS Safety Report 8489591-1 (Version None)
Quarter: 2012Q3

REPORT INFORMATION
  Report Type: 
  Country: None (occurrence: None)
  Receive Date: 20120705
  Receipt Date: 20120626
  Transmission Date: 20120928
  Serious: Yes (Other)
  Sender: FDA-Public Use
  Company Number: IE-JNJFOC-20120700116

PATIENT
  Age: 83 Year
  Sex: Male

DRUGS (3)
  1. MICONAZOLE [Suspect]
     Indication: ORAL CANDIDIASIS
     Route: 048
     Dates: start: 20111223, end: 20111226
  2. WARFARIN SODIUM [Suspect]
     Indication: PRODUCT USED FOR UNKNOWN INDICATION
     Route: 065
  3. MICONAZOLE [Suspect]
     Route: 048

REACTIONS (2)
  - PROTHROMBIN TIME PROLONGED [None]
  - INTERNATIONAL NORMALISED RATIO INCREASED [None]
